FAERS Safety Report 13083016 (Version 3)
Quarter: 2017Q1

REPORT INFORMATION
  Report Type: Report from Study
  Country: US (occurrence: US)
  Receive Date: 20170104
  Receipt Date: 20170216
  Transmission Date: 20170428
  Serious: Yes (Other)
  Sender: FDA-Public Use
  Company Number: US-009507513-1701USA000012

PATIENT
  Age: 59 Year
  Sex: Male

DRUGS (1)
  1. PEMBROLIZUMAB. [Suspect]
     Active Substance: PEMBROLIZUMAB
     Indication: SQUAMOUS CELL CARCINOMA OF HEAD AND NECK
     Dosage: UNK, EVERY THREE WEEKS
     Route: 042
     Dates: start: 20161219

REACTIONS (8)
  - Malignant neoplasm progression [Unknown]
  - Pre-existing condition improved [Recovered/Resolved]
  - Pre-existing condition improved [Not Recovered/Not Resolved]
  - Musculoskeletal pain [Recovering/Resolving]
  - Fatigue [Unknown]
  - Therapeutic response unexpected [Recovering/Resolving]
  - Diarrhoea [Unknown]
  - Insomnia [Unknown]

NARRATIVE: CASE EVENT DATE: 201612
